FAERS Safety Report 7611038-5 (Version None)
Quarter: 2011Q3

REPORT INFORMATION
  Report Type: 
  Country: None (occurrence: None)
  Receive Date: 20110707
  Receipt Date: 20110621
  Transmission Date: 20111222
  Serious: Yes (Hospitalization)
  Sender: FDA-Public Use
  Company Number: TCI2011A03650

PATIENT
  Age: 63 Year
  Sex: Male

DRUGS (3)
  1. BLOPRESS (CANDESARTAN CILEXETIL) [Concomitant]
  2. ACTOS [Suspect]
     Indication: DIABETES MELLITUS
     Dosage: 30 MG (30 MG,1 D) PER ORAL
     Route: 048
     Dates: start: 20040101, end: 20110611
  3. GLACTIV (SITAGLIPTNI PHOSPHATE HYDRATE) (ORAL ANTIDIABETICS) [Concomitant]

REACTIONS (1)
  - BLADDER CANCER [None]
